FAERS Safety Report 19888087 (Version 2)
Quarter: 2021Q4

REPORT INFORMATION
  Report Type: Report from Study
  Country: US (occurrence: US)
  Receive Date: 20210927
  Receipt Date: 20211130
  Transmission Date: 20220303
  Serious: Yes (Other)
  Sender: FDA-Public Use
  Company Number: US-MYLANLABS-2021M1065341

PATIENT

DRUGS (2)
  1. EMTRICITABINE\TENOFOVIR DISOPROXIL [Suspect]
     Active Substance: EMTRICITABINE\TENOFOVIR DISOPROXIL
     Indication: Product used for unknown indication
     Dosage: TOTAL DAILY DOSE 1, TR. DUR: LESS THAN A WEEK
     Route: 064
     Dates: start: 20210314
  2. TIVICAY [Suspect]
     Active Substance: DOLUTEGRAVIR SODIUM
     Indication: Product used for unknown indication
     Dosage: TOTAL DAILY DOSE 1, TR. DUR: LESS THAN A WEEK
     Route: 064
     Dates: start: 20210314

REACTIONS (2)
  - Hypoplastic left heart syndrome [Unknown]
  - Foetal exposure during pregnancy [Recovered/Resolved]
